FAERS Safety Report 16590585 (Version 1)
Quarter: 2019Q3

REPORT INFORMATION
  Report Type: Spontaneous
  Country: US (occurrence: US)
  Receive Date: 20190604
  Receipt Date: 20190604
  Transmission Date: 20191004
  Serious: Yes (Hospitalization)
  Sender: FDA-Public Use
  Company Number: None

PATIENT
  Age: 62 Year
  Sex: Male
  Weight: 63.5 kg

DRUGS (2)
  1. CEFEPIME [Suspect]
     Active Substance: CEFEPIME HYDROCHLORIDE
     Indication: PAIN
  2. CEFEPIME [Suspect]
     Active Substance: CEFEPIME HYDROCHLORIDE
     Indication: ACINETOBACTER INFECTION
     Route: 042
     Dates: start: 20190424, end: 20190430

REACTIONS (4)
  - Confusional state [None]
  - Aphasia [None]
  - Myoclonus [None]
  - Fall [None]

NARRATIVE: CASE EVENT DATE: 20190430
